FAERS Safety Report 8474984-9 (Version None)
Quarter: 2012Q2

REPORT INFORMATION
  Report Type: 
  Country: None (occurrence: None)
  Receive Date: 20120628
  Receipt Date: 20120626
  Transmission Date: 20120825
  Serious: Yes (Hospitalization, Other)
  Sender: FDA-Public Use
  Company Number: PHEH2011US008949

PATIENT
  Sex: Female

DRUGS (13)
  1. KEPPRA [Concomitant]
     Dosage: UNK UKN, UNK
     Route: 048
  2. LEXAPRO [Concomitant]
     Dosage: UNK UKN, UNK
  3. ELAVIL [Concomitant]
  4. TRAZODONE HCL [Concomitant]
  5. BACTRIM [Concomitant]
  6. PEPCID [Concomitant]
     Dosage: UNK UKN, UNK
  7. PROMETHAZINE [Concomitant]
  8. AMITRIPTYLINE HCL [Concomitant]
     Dosage: UNK UKN, UNK
  9. ATIVAN [Concomitant]
     Indication: CONVULSION
     Dosage: UNK UKN, UNK
  10. KETOROLAC TROMETHAMINE [Concomitant]
  11. SEROQUEL [Concomitant]
  12. GILENYA [Suspect]
     Indication: MULTIPLE SCLEROSIS
     Dosage: 0.5 MG, QD
     Route: 048
     Dates: start: 20111102, end: 20120626
  13. IBUPROFEN [Concomitant]

REACTIONS (16)
  - PAIN [None]
  - LOSS OF CONSCIOUSNESS [None]
  - DYSPNOEA [None]
  - HYPERHIDROSIS [None]
  - PETIT MAL EPILEPSY [None]
  - LETHARGY [None]
  - ARTHRALGIA [None]
  - RESPIRATORY ARREST [None]
  - AMNESIA [None]
  - HYPERTENSION [None]
  - MUSCULOSKELETAL PAIN [None]
  - EYE MOVEMENT DISORDER [None]
  - UNRESPONSIVE TO STIMULI [None]
  - FATIGUE [None]
  - STARING [None]
  - FEELING HOT [None]
